FAERS Safety Report 7329990-4 (Version None)
Quarter: 2011Q1

REPORT INFORMATION
  Report Type: 
  Country: None (occurrence: None)
  Receive Date: 20110303
  Receipt Date: 20110221
  Transmission Date: 20110831
  Serious: Yes (Hospitalization)
  Sender: FDA-Public Use
  Company Number: GB-GENENTECH-313870

PATIENT
  Sex: Female

DRUGS (3)
  1. MABTHERA [Suspect]
     Indication: RHEUMATOID ARTHRITIS
     Dosage: 1 G, UNK
     Route: 065
     Dates: start: 20100510
  2. MABTHERA [Suspect]
     Dosage: UNK
     Dates: start: 20110110
  3. METHOTREXATE [Concomitant]
     Indication: RHEUMATOID ARTHRITIS
     Dosage: UNK
     Route: 065
     Dates: start: 20050101

REACTIONS (7)
  - NAUSEA [None]
  - PAIN IN EXTREMITY [None]
  - ASTHMA [None]
  - PYREXIA [None]
  - FATIGUE [None]
  - MUSCLE SPASMS [None]
  - INFLUENZA [None]
